FAERS Safety Report 12085295 (Version 1)
Quarter: 2016Q1

REPORT INFORMATION
  Report Type: Spontaneous
  Country: IT (occurrence: IT)
  Receive Date: 20160217
  Receipt Date: 20160217
  Transmission Date: 20160526
  Serious: Yes (Other)
  Sender: FDA-Public Use
  Company Number: IT-ACTAVIS-2016-02358

PATIENT
  Age: 93 Year
  Sex: Female

DRUGS (1)
  1. PIOGLITAZONE ACTAVIS [Suspect]
     Active Substance: PIOGLITAZONE
     Indication: PRODUCT USED FOR UNKNOWN INDICATION
     Dosage: UNK
     Route: 065
     Dates: start: 20160110, end: 20160120

REACTIONS (1)
  - Diabetes mellitus inadequate control [Unknown]

NARRATIVE: CASE EVENT DATE: 20160120
